FAERS Safety Report 4428223-6 (Version None)
Quarter: 2004Q3

REPORT INFORMATION
  Report Type: 
  Country: None (occurrence: None)
  Receive Date: 20040726
  Receipt Date: 20040322
  Transmission Date: 20050211
  Serious: No
  Sender: FDA-Public Use
  Company Number: USA040362377

PATIENT
  Age: 77 Year
  Sex: Female
  Weight: 66 kg

DRUGS (3)
  1. FORTEO [Suspect]
     Indication: OSTEOPOROSIS
     Dates: start: 20040309
  2. FOSAMAX [Concomitant]
  3. CALCIUM AND VITAMIN D [Concomitant]

REACTIONS (7)
  - ABDOMINAL PAIN UPPER [None]
  - DIZZINESS [None]
  - ERUCTATION [None]
  - FATIGUE [None]
  - NAUSEA [None]
  - PAIN [None]
  - VOMITING [None]
